FAERS Safety Report 5550056-8 (Version None)
Quarter: 2007Q4

REPORT INFORMATION
  Report Type: 
  Country: None (occurrence: None)
  Receive Date: 20071212
  Receipt Date: 20071127
  Transmission Date: 20080405
  Serious: No
  Sender: FDA-Public Use
  Company Number: GB-PFIZER INC-2007069642

PATIENT
  Age: 36 Year
  Sex: Male

DRUGS (4)
  1. IDARUBICIN HCL [Suspect]
     Indication: CHEMOTHERAPY
     Route: 042
  2. CYTARABINE [Suspect]
     Indication: CHEMOTHERAPY
     Route: 042
  3. FILGRASTIM [Suspect]
     Indication: CHEMOTHERAPY
     Route: 058
  4. FLUDARABINE [Suspect]
     Indication: CHEMOTHERAPY
     Route: 042

REACTIONS (1)
  - NO ADVERSE REACTION [None]
